FAERS Safety Report 8876623 (Version 1)
Quarter: 2012Q4

REPORT INFORMATION
  Report Type: 
  Country: BE (occurrence: BE)
  Receive Date: 20121029
  Receipt Date: 20121029
  Transmission Date: 20130627
  Serious: Yes (Other)
  Sender: FDA-Public Use
  Company Number: PHHY2012BE095232

PATIENT
  Age: 28 Year
  Sex: Female

DRUGS (1)
  1. ENOXAPARIN SODIUM [Suspect]
     Indication: PROPHYLAXIS
     Dosage: 40 mg, UNK

REACTIONS (4)
  - Spinal vascular disorder [Unknown]
  - Spinal haematoma [Unknown]
  - Sensorimotor disorder [Not Recovered/Not Resolved]
  - Neuralgia [Unknown]
